FAERS Safety Report 13271590 (Version 3)
Quarter: 2017Q2

REPORT INFORMATION
  Report Type: Spontaneous
  Country: US (occurrence: US)
  Receive Date: 20170227
  Receipt Date: 20170430
  Transmission Date: 20170830
  Serious: Yes (Other)
  Sender: FDA-Public Use
  Company Number: PHEH2017US005181

PATIENT
  Sex: Male

DRUGS (1)
  1. VOTRIENT [Suspect]
     Active Substance: PAZOPANIB HYDROCHLORIDE
     Indication: LUNG NEOPLASM
     Dosage: 800 MG, (4 DF IN THE MORNING) UNK
     Route: 065

REACTIONS (8)
  - Malignant neoplasm progression [Unknown]
  - Drug ineffective [Unknown]
  - Pneumonia [Unknown]
  - Cough [Unknown]
  - Lung neoplasm [Unknown]
  - Neck mass [Unknown]
  - Product use issue [Unknown]
  - Blood pressure increased [Unknown]
